FAERS Safety Report 18110809 (Version 1)
Quarter: 2020Q3

REPORT INFORMATION
  Report Type: Spontaneous
  Country: JP (occurrence: JP)
  Receive Date: 20200805
  Receipt Date: 20200805
  Transmission Date: 20201103
  Serious: Yes (Death, Hospitalization)
  Sender: FDA-Public Use
  Company Number: JP-INCYTE CORPORATION-2019IN013275

PATIENT

DRUGS (1)
  1. JAKAVI [Suspect]
     Active Substance: RUXOLITINIB
     Indication: MYELOFIBROSIS
     Dosage: UNK
     Route: 048

REACTIONS (4)
  - Myelofibrosis [Fatal]
  - Wrong technique in product usage process [Unknown]
  - Dysphagia [Unknown]
  - Oedema [Unknown]
